FAERS Safety Report 5080784-2 (Version None)
Quarter: 2006Q3

REPORT INFORMATION
  Report Type: 
  Country: None (occurrence: None)
  Receive Date: 20060809
  Receipt Date: 20060724
  Transmission Date: 20061208
  Serious: Yes (Hospitalization, Other)
  Sender: FDA-Public Use
  Company Number: 2006AL001953

PATIENT
  Age: 79 Year
  Sex: Male

DRUGS (5)
  1. DICLOFENAC [Suspect]
     Indication: PAIN IN EXTREMITY
     Dosage: 200 MG;BID;PO
     Route: 048
  2. ASPIRIN [Concomitant]
  3. METOPROLOL [Concomitant]
  4. SIMVASTATIN [Concomitant]
  5. IRBESARTAN [Concomitant]

REACTIONS (4)
  - BLOOD UREA INCREASED [None]
  - COLD SWEAT [None]
  - GASTROINTESTINAL HAEMORRHAGE [None]
  - HAEMATEMESIS [None]
